FAERS Safety Report 13521497 (Version 1)
Quarter: 2017Q2

REPORT INFORMATION
  Report Type: Spontaneous
  Country: US (occurrence: US)
  Receive Date: 20170506
  Receipt Date: 20170506
  Transmission Date: 20170830
  Serious: Yes (Disabling)
  Sender: FDA-Public Use
  Company Number: None

PATIENT
  Age: 71 Year
  Sex: Male
  Weight: 72 kg

DRUGS (2)
  1. DILTIAZEM XR [Concomitant]
     Active Substance: DILTIAZEM
  2. LUPRON [Suspect]
     Active Substance: LEUPROLIDE ACETATE
     Indication: PROSTATE CANCER
     Dates: start: 20151218, end: 20160320

REACTIONS (5)
  - Feeling abnormal [None]
  - Fatigue [None]
  - Muscular weakness [None]
  - Bone pain [None]
  - Vomiting [None]

NARRATIVE: CASE EVENT DATE: 20160130
